FAERS Safety Report 18561106 (Version 3)
Quarter: 2021Q1

REPORT INFORMATION
  Report Type: Report from Study
  Country: US (occurrence: US)
  Receive Date: 20201130
  Receipt Date: 20210223
  Transmission Date: 20210419
  Serious: Yes (Other)
  Sender: FDA-Public Use
  Company Number: US-TAKEDA-US-001070

PATIENT
  Sex: Female

DRUGS (23)
  1. TPN NO.2 [Concomitant]
     Indication: MEDICAL DIET
     Dosage: DF
     Route: 065
  2. TEDUGLUTIDE [Suspect]
     Active Substance: TEDUGLUTIDE
     Dosage: 0.108 MILLILITER, QOD
     Route: 058
     Dates: start: 2014, end: 201406
  3. TEDUGLUTIDE [Suspect]
     Active Substance: TEDUGLUTIDE
     Dosage: 5 MILLIGRAM
     Route: 065
  4. TEDUGLUTIDE [Suspect]
     Active Substance: TEDUGLUTIDE
     Dosage: 5 MILLIGRAM
     Route: 065
  5. VITAMIN D3 [Concomitant]
     Active Substance: CHOLECALCIFEROL
     Indication: VITAMIN SUPPLEMENTATION
     Dosage: STREN/VOLUM: 1 TABLET|FREQU: ONCE A DAY
     Route: 065
  6. TEDUGLUTIDE [Suspect]
     Active Substance: TEDUGLUTIDE
     Indication: SHORT-BOWEL SYNDROME
     Dosage: 0.215 MILLILITER, QD
     Route: 058
     Dates: start: 201404, end: 2014
  7. TEDUGLUTIDE [Suspect]
     Active Substance: TEDUGLUTIDE
     Indication: SHORT-BOWEL SYNDROME
     Dosage: 0.215 MILLILITER, QD
     Route: 058
     Dates: start: 201404, end: 2014
  8. TEDUGLUTIDE [Suspect]
     Active Substance: TEDUGLUTIDE
     Indication: SHORT-BOWEL SYNDROME
     Dosage: 0.215 MILLILITER, QD
     Route: 058
     Dates: start: 201404, end: 2014
  9. TEDUGLUTIDE [Suspect]
     Active Substance: TEDUGLUTIDE
     Dosage: 0.24 UNK, QD
     Route: 058
  10. TEDUGLUTIDE [Suspect]
     Active Substance: TEDUGLUTIDE
     Dosage: 5 MILLIGRAM
     Route: 065
  11. AVONEX [Concomitant]
     Active Substance: INTERFERON BETA-1A
     Indication: MULTIPLE SCLEROSIS
     Dosage: STREN/VOLUM: 1 INJECTION|FREQU: ONCE A WEEK
     Route: 065
  12. TEDUGLUTIDE [Suspect]
     Active Substance: TEDUGLUTIDE
     Dosage: 0.108 MILLILITER, QOD
     Route: 058
     Dates: start: 2014, end: 201406
  13. FENTANYL TRANSDERMAL SYSTEM [Concomitant]
     Active Substance: FENTANYL
     Indication: PAIN
     Dosage: STREN/VOLUM: 50 MCG|FREQU: CHANGE EVERY OTHER DAY
     Route: 065
  14. SYNTHROID [Concomitant]
     Active Substance: LEVOTHYROXINE SODIUM
     Indication: HYPOTHYROIDISM
     Dosage: STREN/VOLUM: 0.15 MCG|FREQU: ONCE A DAY
     Route: 065
  15. TEDUGLUTIDE [Suspect]
     Active Substance: TEDUGLUTIDE
     Indication: SHORT-BOWEL SYNDROME
     Dosage: 0.215 MILLILITER, QD
     Route: 058
     Dates: start: 201404, end: 2014
  16. TEDUGLUTIDE [Suspect]
     Active Substance: TEDUGLUTIDE
     Dosage: 0.108 MILLILITER, QOD
     Route: 058
     Dates: start: 2014, end: 201406
  17. TEDUGLUTIDE [Suspect]
     Active Substance: TEDUGLUTIDE
     Dosage: 0.108 MILLILITER, QOD
     Route: 058
     Dates: start: 2014, end: 201406
  18. TEDUGLUTIDE [Suspect]
     Active Substance: TEDUGLUTIDE
     Dosage: 5 MILLIGRAM
     Route: 065
  19. TEDUGLUTIDE [Suspect]
     Active Substance: TEDUGLUTIDE
     Dosage: 0.24 UNK, QD
     Route: 058
  20. TEDUGLUTIDE [Suspect]
     Active Substance: TEDUGLUTIDE
     Dosage: 0.24 UNK, QD
     Route: 058
  21. TEDUGLUTIDE [Suspect]
     Active Substance: TEDUGLUTIDE
     Dosage: 0.24 UNK, QD
     Route: 058
  22. GABAPENTIN. [Concomitant]
     Active Substance: GABAPENTIN
     Indication: NEURALGIA
     Dosage: STREN/VOLUM: 600 MG|FREQU: THREE TIMES A DAY
     Route: 065
  23. SOMA [Concomitant]
     Active Substance: CARISOPRODOL
     Indication: ANXIETY
     Dosage: STREN/VOLUM: 1 TABLET|FREQU: THREE TIMES A DAY
     Route: 065

REACTIONS (3)
  - Depression [Not Recovered/Not Resolved]
  - Abdominal distension [Not Recovered/Not Resolved]
  - Inability to afford medication [Not Recovered/Not Resolved]

NARRATIVE: CASE EVENT DATE: 2014
